FAERS Safety Report 14624737 (Version 2)
Quarter: 2018Q2

REPORT INFORMATION
  Report Type: Spontaneous
  Country: US (occurrence: US)
  Receive Date: 20180312
  Receipt Date: 20180419
  Transmission Date: 20180711
  Serious: No
  Sender: FDA-Public Use
  Company Number: US-PFIZER INC-2018098742

PATIENT
  Age: 64 Year
  Sex: Male

DRUGS (15)
  1. FENTANYL PT7 [Concomitant]
     Dosage: UNK, (75 MCG/HR)
  2. GEMFIBROZIL. [Concomitant]
     Active Substance: GEMFIBROZIL
     Dosage: 600 MG, UNK
  3. SUTENT [Suspect]
     Active Substance: SUNITINIB MALATE
     Indication: RENAL CANCER
     Dosage: 50 MG, CYCLIC, (TAKE 1 CAPSULE BY MOUTH EVERY DAY FOR 4 WEEKS ON, THEN 2 WEEKS OFF)
     Route: 048
     Dates: start: 20170714
  4. CEPHALEXIN. [Concomitant]
     Active Substance: CEPHALEXIN
     Dosage: 500 MG, UNK
  5. LISINOPRIL-H [Concomitant]
     Dosage: UNK, (20-12.5M)
  6. ENOXAPARIN [Concomitant]
     Active Substance: ENOXAPARIN
     Dosage: UNK, 100 MG/ML, (S SOL)
  7. HYDROCODONE [Concomitant]
     Active Substance: HYDROCODONE
     Dosage: UNK, (5-325MG)
  8. NIACIN. [Concomitant]
     Active Substance: NIACIN
     Dosage: 750 MG, UNK (ER TBC)
  9. PREDNISONE. [Concomitant]
     Active Substance: PREDNISONE
     Dosage: 20 MG, UNK
  10. ZOFRAN [Concomitant]
     Active Substance: ONDANSETRON HYDROCHLORIDE
     Dosage: 4 MG, UNK
  11. ALPRAZOLAM. [Concomitant]
     Active Substance: ALPRAZOLAM
     Dosage: 0.25 MG, UNK
  12. HYDROMORPHON AL [Concomitant]
     Dosage: UNK, 2 MG/ML, UNK (SOL)
  13. LISINOPRIL. [Concomitant]
     Active Substance: LISINOPRIL
     Dosage: 20 MG, UNK
  14. POLYETHYLENE GLYCOL [Concomitant]
     Active Substance: POLYETHYLENE GLYCOLS
     Dosage: UNK (POW)
  15. OXYCODONE HC [Concomitant]
     Dosage: 5 MG, UNK

REACTIONS (5)
  - Abdominal discomfort [Unknown]
  - Dry eye [Not Recovered/Not Resolved]
  - Coagulopathy [Unknown]
  - Rash [Not Recovered/Not Resolved]
  - Diarrhoea [Not Recovered/Not Resolved]
